FAERS Safety Report 7570410-2 (Version None)
Quarter: 2011Q2

REPORT INFORMATION
  Report Type: 
  Country: None (occurrence: None)
  Receive Date: 20110624
  Receipt Date: 20110314
  Transmission Date: 20111010
  Serious: No
  Sender: FDA-Public Use
  Company Number: US-ALLERGAN-1103616US

PATIENT
  Age: 59 Year
  Sex: Female

DRUGS (1)
  1. LATISSE [Suspect]
     Indication: HYPOTRICHOSIS
     Dosage: 1 GTT, QHS
     Route: 061
     Dates: start: 20101126, end: 20110312

REACTIONS (4)
  - EYELID DISORDER [None]
  - EYELID PAIN [None]
  - EYELID OEDEMA [None]
  - ERYTHEMA OF EYELID [None]
